FAERS Safety Report 26211113 (Version 1)
Quarter: 2025Q4

REPORT INFORMATION
  Report Type: Spontaneous
  Country: EU (occurrence: EU)
  Receive Date: 20251230
  Receipt Date: 20251230
  Transmission Date: 20260117
  Serious: Yes (Death, Other)
  Sender: AMGEN
  Company Number: EU-AMGEN-ITASP2025255973

PATIENT

DRUGS (2)
  1. BLINATUMOMAB [Suspect]
     Active Substance: BLINATUMOMAB
     Indication: Acute lymphocytic leukaemia
     Dosage: UNK (AT LEAST 2 CYCLES)
     Route: 040
  2. PONATINIB [Concomitant]
     Active Substance: PONATINIB
     Indication: Acute lymphocytic leukaemia
     Dosage: AT 45 OR 30 MG ACCORDING TO AGE

REACTIONS (8)
  - Death [Fatal]
  - Pneumonia [Fatal]
  - Ileus paralytic [Fatal]
  - General physical health deterioration [Fatal]
  - Acute lymphocytic leukaemia recurrent [Unknown]
  - Cardiotoxicity [Unknown]
  - Therapy partial responder [Unknown]
  - Toxicity to various agents [Unknown]
